FAERS Safety Report 5936020-5 (Version None)
Quarter: 2008Q4

REPORT INFORMATION
  Report Type: 
  Country: None (occurrence: None)
  Receive Date: 20081030
  Receipt Date: 20081023
  Transmission Date: 20090506
  Serious: Yes (Other)
  Sender: FDA-Public Use
  Company Number: US-GILEAD-2008-0018692

PATIENT
  Sex: Female
  Weight: 52.664 kg

DRUGS (9)
  1. LETAIRIS [Suspect]
     Indication: PULMONARY HYPERTENSION
     Route: 048
  2. FLOLAN [Concomitant]
  3. VIAGRA [Concomitant]
  4. LASIX [Concomitant]
  5. HYDROCHLOROTHIAZIDE [Concomitant]
  6. DIGOXIN [Concomitant]
  7. PREDNISONE TAB [Concomitant]
  8. NEXIUM [Concomitant]
  9. KLOR-CON [Concomitant]

REACTIONS (6)
  - BACTERIAL INFECTION [None]
  - CONTUSION [None]
  - DYSPNOEA [None]
  - HEPATOSPLENOMEGALY [None]
  - INSOMNIA [None]
  - UNEVALUABLE EVENT [None]
